FAERS Safety Report 24396089 (Version 1)
Quarter: 2024Q4

REPORT INFORMATION
  Report Type: Spontaneous
  Country: US (occurrence: US)
  Receive Date: 20241004
  Receipt Date: 20241004
  Transmission Date: 20250115
  Serious: No
  Sender: SANDOZ
  Company Number: US-002147023-NVSC2022US304855

PATIENT
  Age: 30 Year
  Sex: Female
  Weight: 60 kg

DRUGS (1)
  1. CIPROFLOXACIN HYDROCHLORIDE\DEXAMETHASONE [Suspect]
     Active Substance: CIPROFLOXACIN HYDROCHLORIDE\DEXAMETHASONE
     Indication: Product used for unknown indication
     Dosage: 4 DRP, QD
     Route: 047
     Dates: start: 20220703, end: 20220703

REACTIONS (1)
  - Eye pain [Recovering/Resolving]

NARRATIVE: CASE EVENT DATE: 20220703
